FAERS Safety Report 20456214 (Version 3)
Quarter: 2022Q1

REPORT INFORMATION
  Report Type: Spontaneous
  Country: FR (occurrence: FR)
  Receive Date: 20220210
  Receipt Date: 20220330
  Transmission Date: 20220423
  Serious: Yes (Life-Threatening, Hospitalization)
  Sender: FDA-Public Use
  Company Number: None

PATIENT
  Age: 71 Year
  Sex: Male
  Weight: 89 kg

DRUGS (5)
  1. VENLAFAXINE HYDROCHLORIDE [Suspect]
     Active Substance: VENLAFAXINE HYDROCHLORIDE
     Indication: Suicide attempt
     Dosage: 5100 MG, SINGLE
     Route: 048
     Dates: start: 20220110, end: 20220110
  2. TERALITHE [Suspect]
     Active Substance: LITHIUM CARBONATE
     Indication: Suicide attempt
     Dosage: 20000 MG, SINGLE
     Route: 048
     Dates: start: 20220110, end: 20220110
  3. CLOMIPRAMINE [Suspect]
     Active Substance: CLOMIPRAMINE
     Indication: Suicide attempt
     Dosage: 2250 MG, SINGLE
     Dates: start: 20220110, end: 20220110
  4. OXAZEPAM [Suspect]
     Active Substance: OXAZEPAM
     Indication: Suicide attempt
     Dosage: 2030 MG, SINGLE
     Route: 048
     Dates: start: 20220110, end: 20220110
  5. TRIMEPRAZINE [Suspect]
     Active Substance: TRIMEPRAZINE
     Indication: Suicide attempt
     Dosage: 125 MG, SINGLE
     Dates: start: 20220110, end: 20220110

REACTIONS (3)
  - Electrocardiogram QT prolonged [Recovered/Resolved]
  - Intentional overdose [Recovered/Resolved]
  - Coma [Recovered/Resolved]

NARRATIVE: CASE EVENT DATE: 20220110
